FAERS Safety Report 19729603 (Version 4)
Quarter: 2022Q1

REPORT INFORMATION
  Report Type: Other
  Country: IN (occurrence: None)
  Receive Date: 20210821
  Receipt Date: 20220105
  Transmission Date: 20220423
  Serious: Yes (Death, Hospitalization)
  Sender: FDA-Public Use
  Company Number: IN-ROCHE-2892868

PATIENT
  Age: 79 Year
  Sex: Male

DRUGS (1)
  1. GAVRETO [Suspect]
     Active Substance: PRALSETINIB
     Indication: Lung neoplasm malignant
     Dosage: 400MG - 2 DAYS - 13TH + 14TH AUG?200MG - 1 DAY - 15TH AUG?STOPPED FOR 11 DAYS AND RESTARTED FROM 27T
     Route: 048
     Dates: start: 20210813

REACTIONS (22)
  - Dyspnoea [Not Recovered/Not Resolved]
  - Anxiety [Not Recovered/Not Resolved]
  - Blood sodium decreased [Unknown]
  - Urinary tract infection [Unknown]
  - Protein total decreased [Unknown]
  - Pyrexia [Unknown]
  - Hypotension [Unknown]
  - Amnesia [Unknown]
  - Dizziness [Unknown]
  - Asthenia [Unknown]
  - Asthenia [Unknown]
  - Cough [Unknown]
  - Decreased appetite [Unknown]
  - Muscle spasms [Unknown]
  - Chills [Unknown]
  - Constipation [Unknown]
  - Diarrhoea [Unknown]
  - Somnolence [Unknown]
  - Chills [Unknown]
  - Death [Fatal]
  - Feeling abnormal [Unknown]
  - General physical health deterioration [Unknown]

NARRATIVE: CASE EVENT DATE: 20210813
